FAERS Safety Report 6384157-1 (Version None)
Quarter: 2009Q4

REPORT INFORMATION
  Report Type: 
  Country: None (occurrence: None)
  Receive Date: 20091001
  Receipt Date: 20090930
  Transmission Date: 20100525
  Serious: Yes (Death, Other)
  Sender: FDA-Public Use
  Company Number: DE-BAYER-200923776GPV

PATIENT
  Sex: Male

DRUGS (2)
  1. NEXAVAR [Suspect]
     Indication: HEPATIC NEOPLASM MALIGNANT
     Route: 048
  2. ANTIBIOTICS [Concomitant]
     Indication: NEPHROLITHIASIS
     Route: 065

REACTIONS (4)
  - ASTHENIA [None]
  - DEATH [None]
  - JAUNDICE [None]
  - RASH [None]
